FAERS Safety Report 17179154 (Version 1)
Quarter: 2019Q4

REPORT INFORMATION
  Report Type: Report from Study
  Country: CA (occurrence: CA)
  Receive Date: 20191219
  Receipt Date: 20191219
  Transmission Date: 20200122
  Serious: Yes (Other)
  Sender: FDA-Public Use
  Company Number: CA-SAMSUNG BIOEPIS-SB-2019-38439

PATIENT
  Sex: Female

DRUGS (1)
  1. BRENZYS [Suspect]
     Active Substance: ETANERCEPT
     Indication: RHEUMATOID ARTHRITIS
     Dosage: HALF DOSE
     Route: 058
     Dates: start: 20191121

REACTIONS (6)
  - Erythema [Unknown]
  - Epistaxis [Unknown]
  - Dyspnoea at rest [Not Recovered/Not Resolved]
  - Lip ulceration [Unknown]
  - Nasopharyngitis [Unknown]
  - Product use issue [Unknown]
